FAERS Safety Report 7980723-8 (Version None)
Quarter: 2011Q4

REPORT INFORMATION
  Report Type: 
  Country: None (occurrence: None)
  Receive Date: 20111214
  Receipt Date: 20111202
  Transmission Date: 20120403
  Serious: Yes (Other)
  Sender: FDA-Public Use
  Company Number: US-ELI_LILLY_AND_COMPANY-US201103008943

PATIENT
  Sex: Female

DRUGS (19)
  1. AMOXICILLIN [Concomitant]
     Dosage: 2000 MG, PRN
  2. FORTEO [Suspect]
     Dosage: 20 UG, QD
     Route: 065
  3. ALBUTEROL [Concomitant]
     Dosage: 90 UG, UNK
  4. FORTEO [Suspect]
     Indication: OSTEOPOROSIS
     Dosage: 20 UG, QD
     Route: 065
     Dates: start: 20110320
  5. FORTEO [Suspect]
     Dosage: 20 UG, QD
     Route: 065
  6. SIMVASTATIN [Concomitant]
     Dosage: 40 MG, QD
  7. SERTRALINE HYDROCHLORIDE [Concomitant]
     Dosage: 100 MG, UNK
  8. ASCORBIC ACID [Concomitant]
     Dosage: 500 MG, QD
  9. FORTEO [Suspect]
     Dosage: 20 UG, QD
     Route: 065
  10. VITAMIN D [Concomitant]
     Dosage: 2000 IU, QD
  11. DICYCLOMINE HCL [Concomitant]
     Dosage: 40 MG, QD
  12. FORTEO [Suspect]
     Dosage: 20 UG, QD
     Route: 065
  13. FORTEO [Suspect]
     Dosage: 20 UG, QD
     Route: 065
  14. FORTEO [Suspect]
     Dosage: 20 UG, QD
     Route: 065
  15. ADVAIR DISKUS 100/50 [Concomitant]
     Dosage: 1 UNK, UNK
  16. ASPIRIN [Concomitant]
     Dosage: 1 DF, QD
  17. OSCAL D                            /00944201/ [Concomitant]
     Dosage: 500 MG, QD
  18. FAMOTIDINE [Concomitant]
     Dosage: 20 MG, QD
  19. LORAZEPAM [Concomitant]
     Dosage: 5 MG, UNK

REACTIONS (22)
  - CARDIAC FAILURE CONGESTIVE [None]
  - PAIN [None]
  - ANXIETY [None]
  - AXILLARY PAIN [None]
  - CHEST PAIN [None]
  - BASAL CELL CARCINOMA [None]
  - BACK PAIN [None]
  - MUSCULOSKELETAL CHEST PAIN [None]
  - DISCOMFORT [None]
  - DYSPNOEA [None]
  - SCOTOMA [None]
  - VISUAL FIELD DEFECT [None]
  - ALTERED VISUAL DEPTH PERCEPTION [None]
  - FATIGUE [None]
  - BLINDNESS [None]
  - TEMPORAL ARTERITIS [None]
  - PAPILLOEDEMA [None]
  - OPTIC NERVE DISORDER [None]
  - BONE PAIN [None]
  - SPINAL COMPRESSION FRACTURE [None]
  - TREMOR [None]
  - DRUG DOSE OMISSION [None]
